FAERS Safety Report 24701238 (Version 2)
Quarter: 2025Q2

REPORT INFORMATION
  Report Type: Spontaneous
  Country: GB (occurrence: GB)
  Receive Date: 20241205
  Receipt Date: 20250421
  Transmission Date: 20250717
  Serious: Yes (Life-Threatening, Hospitalization, Other)
  Sender: MYLAN
  Company Number: GB-ADVANZ PHARMA-202411009703

PATIENT
  Age: 51 Year
  Sex: Male

DRUGS (8)
  1. POMALIDOMIDE [Suspect]
     Active Substance: POMALIDOMIDE
     Indication: Plasma cell myeloma
     Dosage: 4 MG, QD (4MG OD FOR 21DAYS)
     Dates: start: 20241029, end: 20241112
  2. DEXAMETHASONE [Suspect]
     Active Substance: DEXAMETHASONE
     Indication: Plasma cell myeloma
     Dosage: 40 MG, WEEKLY (ON DAYS 1, 8, 15, AND 22)
     Dates: start: 20241029, end: 20241029
  3. INOBRODIB [Suspect]
     Active Substance: INOBRODIB
     Indication: Plasma cell myeloma
     Dosage: 20 MILLIGRAM, BID (DAYS 1-4 OF EACH WEEK)
     Dates: start: 20241029, end: 20241101
  4. METOCLOPRAMIDE [Concomitant]
     Active Substance: METOCLOPRAMIDE
  5. ALLOPURINOL [Concomitant]
     Active Substance: ALLOPURINOL
  6. OMEPRAZOLE [Concomitant]
     Active Substance: OMEPRAZOLE
  7. APIXABAN [Concomitant]
     Active Substance: APIXABAN
  8. ENOXAPARIN SODIUM [Concomitant]
     Active Substance: ENOXAPARIN SODIUM

REACTIONS (5)
  - Hypercalcaemia [Recovered/Resolved]
  - Epistaxis [Recovered/Resolved]
  - Thrombocytopenia [Not Recovered/Not Resolved]
  - Accident [Unknown]
  - Epistaxis [Recovered/Resolved]

NARRATIVE: CASE EVENT DATE: 20241104
